FAERS Safety Report 9933800 (Version 2)
Quarter: 2014Q1

REPORT INFORMATION
  Report Type: Report from Study
  Country: US (occurrence: US)
  Receive Date: 20140228
  Receipt Date: 20140228
  Transmission Date: 20141002
  Serious: No
  Sender: FDA-Public Use
  Company Number: US-MYLANLABS-2013S1015061

PATIENT
  Age: 15 Year
  Sex: Male
  Weight: 56.25 kg

DRUGS (3)
  1. AMNESTEEM CAPSULES [Suspect]
     Indication: ACNE
     Dates: start: 20130516, end: 2013
  2. AMNESTEEM CAPSULES [Suspect]
     Indication: ACNE
     Dates: start: 2013, end: 20130603
  3. CLARAVIS [Suspect]
     Dates: start: 201304

REACTIONS (4)
  - Vomiting [Recovered/Resolved]
  - Nausea [Recovered/Resolved]
  - Abdominal discomfort [Not Recovered/Not Resolved]
  - Decreased appetite [Recovered/Resolved]
